FAERS Safety Report 6290964-6 (Version None)
Quarter: 2009Q3

REPORT INFORMATION
  Report Type: 
  Country: None (occurrence: None)
  Receive Date: 20090729
  Receipt Date: 20090729
  Transmission Date: 20100115
  Serious: Yes (Hospitalization)
  Sender: FDA-Public Use
  Company Number: None

PATIENT
  Sex: Male
  Weight: 66.5 kg

DRUGS (1)
  1. VINCRISTINE SULFATE [Suspect]
     Dosage: 10 MG

REACTIONS (6)
  - APHASIA [None]
  - CONFUSIONAL STATE [None]
  - DRUG TOXICITY [None]
  - MASTICATION DISORDER [None]
  - MENTAL STATUS CHANGES [None]
  - PROTRUSION TONGUE [None]
